FAERS Safety Report 8943472 (Version 5)
Quarter: 2013Q1

REPORT INFORMATION
  Report Type: Spontaneous
  Country: US (occurrence: US)
  Receive Date: 20121204
  Receipt Date: 20130327
  Transmission Date: 20140127
  Serious: Yes (Other)
  Sender: FDA-Public Use
  Company Number: US-PFIZER INC-2012299389

PATIENT
  Age: 34 Year
  Sex: Female

DRUGS (1)
  1. MEDROXYPROGESTERONE ACETATE [Suspect]
     Indication: CONTRACEPTION
     Dosage: 150 MG, EVERY 3 MONTHS
     Route: 030

REACTIONS (6)
  - Product quality issue [Unknown]
  - Hypersensitivity [Unknown]
  - Dyspnoea [Unknown]
  - Urticaria [Recovered/Resolved]
  - Injection site bruising [Unknown]
  - Injection site pain [Unknown]
